FAERS Safety Report 8983117 (Version 1)
Quarter: 2012Q4

REPORT INFORMATION
  Report Type: 
  Country: US (occurrence: US)
  Receive Date: 20121224
  Receipt Date: 20121224
  Transmission Date: 20130627
  Serious: Yes (Death)
  Sender: FDA-Public Use
  Company Number: US-ASTELLAS-2012US012616

PATIENT
  Age: 79 Year
  Sex: Female

DRUGS (3)
  1. AMBISOME [Suspect]
     Indication: FUNGAL INFECTION
     Dosage: 3 mg/kg, Unknown/D
     Route: 065
  2. AMBISOME [Suspect]
     Dosage: 5 mg/kg, Unknown/D
     Route: 065
  3. ANTIHYPERTENSIVES [Concomitant]
     Indication: HYPERTENSION
     Dosage: UNK
     Route: 065

REACTIONS (3)
  - Drug ineffective [Fatal]
  - Nausea [Unknown]
  - Vomiting [Unknown]
